FAERS Safety Report 10538053 (Version 1)
Quarter: 2014Q4

REPORT INFORMATION
  Report Type: Spontaneous
  Country: US (occurrence: US)
  Receive Date: 20141023
  Receipt Date: 20141023
  Transmission Date: 20150529
  Serious: No
  Sender: FDA-Public Use
  Company Number: US-009507513-1410USA008446

PATIENT
  Sex: Male

DRUGS (4)
  1. REBETOL [Suspect]
     Active Substance: RIBAVIRIN
     Indication: HEPATITIS C
     Dosage: ^400^
     Route: 048
     Dates: start: 20090625, end: 20091005
  2. RITONAVIR. [Concomitant]
     Active Substance: RITONAVIR
     Dosage: 100 MG, UNK
  3. PEGINTERFERON ALFA-2A [Suspect]
     Active Substance: PEGINTERFERON ALFA-2A
     Indication: HEPATITIS C
     Dosage: 90 MICROGRAM, QW
     Dates: start: 20090625, end: 20091005
  4. ATAZANAVIR [Concomitant]
     Active Substance: ATAZANAVIR
     Dosage: 300 MG, QPM (WITH DINNER DAILY)

REACTIONS (2)
  - Anaemia [Unknown]
  - Drug ineffective [Recovered/Resolved]

NARRATIVE: CASE EVENT DATE: 2009
